FAERS Safety Report 7413387-2 (Version None)
Quarter: 2011Q2

REPORT INFORMATION
  Report Type: 
  Country: None (occurrence: None)
  Receive Date: 20110413
  Receipt Date: 20110313
  Transmission Date: 20111010
  Serious: No
  Sender: FDA-Public Use
  Company Number: US-BAYER-2011-023597

PATIENT
  Age: 43 Year
  Sex: Male

DRUGS (2)
  1. ASPIRIN [Concomitant]
  2. ALEVE-D SINUS + COLD [Suspect]
     Indication: NASOPHARYNGITIS
     Dosage: 1 DF, QD
     Route: 048
     Dates: start: 20110309, end: 20110310

REACTIONS (3)
  - VOMITING [None]
  - NASOPHARYNGITIS [None]
  - SINUS DISORDER [None]
